FAERS Safety Report 13088521 (Version 1)
Quarter: 2017Q1

REPORT INFORMATION
  Report Type: Report from Study
  Country: None (occurrence: CA)
  Receive Date: 20170105
  Receipt Date: 20170105
  Transmission Date: 20170428
  Serious: Yes (Hospitalization, Other)
  Sender: FDA-Public Use
  Company Number: CA-ABBVIE-17K-028-1827739-00

PATIENT
  Age: 60 Year
  Sex: Female

DRUGS (1)
  1. HUMIRA [Suspect]
     Active Substance: ADALIMUMAB
     Indication: RHEUMATOID ARTHRITIS
     Route: 058
     Dates: start: 20160912

REACTIONS (5)
  - Localised infection [Unknown]
  - Skin discolouration [Not Recovered/Not Resolved]
  - Anaemia [Not Recovered/Not Resolved]
  - Vascular occlusion [Unknown]
  - Thrombosis [Unknown]

NARRATIVE: CASE EVENT DATE: 201611
